FAERS Safety Report 9238778 (Version 1)
Quarter: 2013Q1

REPORT INFORMATION
  Report Type: Spontaneous
  Country: US (occurrence: None)
  Receive Date: 20121113
  Receipt Date: 20121113
  Transmission Date: 20140127
  Serious: Yes (Other)
  Sender: FDA-Public Use
  Company Number: PHEH2012US001789

PATIENT
  Age: 48 Year
  Sex: Female

DRUGS (3)
  1. TRILEPTAL [Suspect]
  2. TOPAMAX (TOPIRAMATE) [Concomitant]
  3. KLONOPIN (CLONAZEPAM) (TABLETS) [Concomitant]

REACTIONS (2)
  - Panic attack [None]
  - Memory impairment [None]
